FAERS Safety Report 8590125-1 (Version None)
Quarter: 2012Q3

REPORT INFORMATION
  Report Type: 
  Country: None (occurrence: None)
  Receive Date: 20120813
  Receipt Date: 20120730
  Transmission Date: 20120928
  Serious: Yes (Hospitalization, Other)
  Sender: FDA-Public Use
  Company Number: US-UCBSA-062944

PATIENT
  Age: 29 Year
  Sex: Female

DRUGS (1)
  1. CIMZIA [Suspect]
     Indication: CROHN'S DISEASE
     Dosage: INDUCTION DOSING, ONCE EVERY 4 WEEKS
     Dates: start: 20120101, end: 20120101

REACTIONS (2)
  - CROHN'S DISEASE [None]
  - VOLVULUS [None]
